FAERS Safety Report 20839526 (Version 1)
Quarter: 2022Q2

REPORT INFORMATION
  Report Type: Spontaneous
  Country: US (occurrence: None)
  Receive Date: 20220516
  Receipt Date: 20220516
  Transmission Date: 20220721
  Serious: Yes (Hospitalization)
  Sender: FDA-Public Use
  Company Number: None

PATIENT
  Age: 65 Year
  Sex: Male
  Weight: 94.3 kg

DRUGS (17)
  1. EVEROLIMUS [Suspect]
     Active Substance: EVEROLIMUS
     Indication: Renal cancer
     Dosage: FREQUENCY : DAILY;?
     Route: 048
     Dates: start: 20210803
  2. AMLODIPINE [Concomitant]
  3. AMOXICILLIN [Concomitant]
     Active Substance: AMOXICILLIN
  4. ATORVASTATIN [Concomitant]
     Active Substance: ATORVASTATIN
  5. CIPRO [Concomitant]
     Active Substance: CIPROFLOXACIN HYDROCHLORIDE
  6. CLONIDINE [Concomitant]
     Active Substance: CLONIDINE
  7. EVEROLIMUS [Concomitant]
     Active Substance: EVEROLIMUS
  8. FAMOTIDINE [Concomitant]
     Active Substance: FAMOTIDINE
  9. KEYTRUDA [Concomitant]
     Active Substance: PEMBROLIZUMAB
  10. LEVOTHYROXINE [Concomitant]
     Active Substance: LEVOTHYROXINE
  11. DIPHENHYDRAMINE HYDROCHLORIDE\LIDOCAINE HYDROCHLORIDE\NYSTATIN [Concomitant]
     Active Substance: DIPHENHYDRAMINE HYDROCHLORIDE\LIDOCAINE HYDROCHLORIDE\NYSTATIN
  12. NOVOLOG [Concomitant]
     Active Substance: INSULIN ASPART
  13. OXYCODONE [Concomitant]
     Active Substance: OXYCODONE
  14. PREDNISONE [Concomitant]
     Active Substance: PREDNISONE
  15. TAMSULOSIN [Concomitant]
     Active Substance: TAMSULOSIN
  16. TRELEGY [Concomitant]
  17. VITAMIN B12 [Concomitant]
     Active Substance: CYANOCOBALAMIN

REACTIONS (1)
  - Loss of consciousness [None]
